FAERS Safety Report 9449715 (Version 2)
Quarter: 2013Q3

REPORT INFORMATION
  Report Type: Spontaneous
  Country: GR (occurrence: GR)
  Receive Date: 20130809
  Receipt Date: 20130822
  Transmission Date: 20140515
  Serious: Yes (Other)
  Sender: FDA-Public Use
  Company Number: GR-ACCORD-018867

PATIENT
  Sex: 0

DRUGS (1)
  1. DOCETAXEL [Suspect]
     Indication: BREAST CANCER

REACTIONS (2)
  - Conjunctival erosion [Unknown]
  - Keratitis [Unknown]
